FAERS Safety Report 7554789-3 (Version None)
Quarter: 2011Q2

REPORT INFORMATION
  Report Type: 
  Country: None (occurrence: None)
  Receive Date: 20110617
  Receipt Date: 20110615
  Transmission Date: 20111010
  Serious: Yes (Other)
  Sender: FDA-Public Use
  Company Number: US-BRISTOL-MYERS SQUIBB COMPANY-15835531

PATIENT
  Age: 74 Year
  Sex: Female

DRUGS (5)
  1. LEXAPRO [Concomitant]
  2. LIPITOR [Concomitant]
  3. ABILIFY [Suspect]
     Indication: DEPRESSION
     Dosage: RESTART WITH 1 PILL ON MAR2011
  4. AMITRIPTYLINE HYDROCHLORIDE [Concomitant]
  5. RISPERDAL [Concomitant]

REACTIONS (2)
  - ALOPECIA [None]
  - WITHDRAWAL SYNDROME [None]
